FAERS Safety Report 5385569-5 (Version None)
Quarter: 2007Q3

REPORT INFORMATION
  Report Type: 
  Country: None (occurrence: None)
  Receive Date: 20070709
  Receipt Date: 20070504
  Transmission Date: 20080115
  Serious: Yes (Life-Threatening, Hospitalization)
  Sender: FDA-Public Use
  Company Number: L07-USA-02870-01

PATIENT
  Age: 84 Year
  Sex: Female

DRUGS (12)
  1. MEMANTINE HCL [Suspect]
     Indication: DEMENTIA ALZHEIMER'S TYPE
     Dosage: 20 MG QD PO
     Route: 048
  2. DONEPEZIL HCL [Suspect]
     Indication: DEMENTIA ALZHEIMER'S TYPE
     Dosage: 10 MG QD
  3. RITALIN [Suspect]
     Indication: FATIGUE
     Dosage: 5 MG DAILY
  4. RITALIN [Suspect]
     Indication: SOCIAL AVOIDANT BEHAVIOUR
     Dosage: 5 MG DAILY
  5. DILTIAZEM [Concomitant]
  6. METOPROLOL SUCCINATE [Concomitant]
  7. SIMVASTATIN [Concomitant]
  8. GEMFIBROZIL [Concomitant]
  9. SPIRONOLACTONE [Concomitant]
  10. THYROXINE ^APS^ (LEVOTHYROXINE SODIUM) [Concomitant]
  11. CONJUGATED ESTROGENS (ESTROGENS CONJUGATED) [Concomitant]
  12. ALPRAZOLAM [Concomitant]

REACTIONS (16)
  - ARTERIOSPASM CORONARY [None]
  - BLOOD PRESSURE SYSTOLIC DECREASED [None]
  - CARDIOGENIC SHOCK [None]
  - CHEST PAIN [None]
  - CORONARY ARTERY DISEASE [None]
  - CORONARY ARTERY OCCLUSION [None]
  - CORONARY ARTERY STENOSIS [None]
  - DRUG INTERACTION [None]
  - DYSPNOEA [None]
  - ELECTROCARDIOGRAM ST SEGMENT ELEVATION [None]
  - HYPOTENSION [None]
  - MYOCARDIAL INFARCTION [None]
  - NODAL ARRHYTHMIA [None]
  - PERIPHERAL COLDNESS [None]
  - PULMONARY OEDEMA [None]
  - SINUS BRADYCARDIA [None]
